FAERS Safety Report 10223674 (Version 2)
Quarter: 2014Q2

REPORT INFORMATION
  Report Type: Spontaneous
  Country: US (occurrence: US)
  Receive Date: 20140609
  Receipt Date: 20140609
  Transmission Date: 20141212
  Serious: No
  Sender: FDA-Public Use
  Company Number: US-DRREDDYS-USA/USA/14/0038101

PATIENT
  Age: 71 Year
  Sex: Female
  Weight: 90.7 kg

DRUGS (3)
  1. FEXOFENADINE HCL  OTC [Suspect]
     Indication: HYPERSENSITIVITY
     Route: 048
     Dates: start: 20140212
  2. FEXOFENADINE [Suspect]
     Indication: HYPERSENSITIVITY
     Route: 048
  3. CHANTIX [Concomitant]
     Indication: EX-TOBACCO USER
     Route: 065

REACTIONS (3)
  - Product commingling [Unknown]
  - Wrong drug administered [Unknown]
  - No adverse event [Unknown]
